FAERS Safety Report 17416476 (Version 1)
Quarter: 2020Q1

REPORT INFORMATION
  Report Type: Spontaneous
  Country: US (occurrence: US)
  Receive Date: 20200213
  Receipt Date: 20200213
  Transmission Date: 20200409
  Serious: Yes (Other)
  Sender: FDA-Public Use
  Company Number: None

PATIENT
  Age: 74 Year
  Sex: Male
  Weight: 61 kg

DRUGS (1)
  1. DIPRIVAN [Suspect]
     Active Substance: PROPOFOL
     Dosage: ?          OTHER FREQUENCY:BOLUS;?
     Route: 040
     Dates: start: 20200212, end: 20200212

REACTIONS (2)
  - Posturing [None]
  - Dyskinesia [None]

NARRATIVE: CASE EVENT DATE: 20200212
